FAERS Safety Report 21146895 (Version 1)
Quarter: 2022Q3

REPORT INFORMATION
  Report Type: Spontaneous
  Country: US (occurrence: None)
  Receive Date: 20220728
  Receipt Date: 20220728
  Transmission Date: 20221027
  Serious: Yes (Life-Threatening, Disabling)
  Sender: FDA-Public Use
  Company Number: None

PATIENT
  Age: 62 Year
  Sex: Male
  Weight: 72 kg

DRUGS (1)
  1. MAGNESIUM CITRATE [Suspect]
     Active Substance: MAGNESIUM CITRATE
     Indication: Constipation
     Dosage: OTHER QUANTITY : 8 OUNCE(S);?
     Route: 048
     Dates: start: 20220704, end: 20220704

REACTIONS (3)
  - Pyrexia [None]
  - COVID-19 [None]
  - Recalled product administered [None]

NARRATIVE: CASE EVENT DATE: 20220704
